FAERS Safety Report 7204875-2 (Version None)
Quarter: 2010Q4

REPORT INFORMATION
  Report Type: 
  Country: None (occurrence: None)
  Receive Date: 20101230
  Receipt Date: 20101220
  Transmission Date: 20110411
  Serious: Yes (Other)
  Sender: FDA-Public Use
  Company Number: CA-JNJFOC-20101207615

PATIENT
  Sex: Male

DRUGS (2)
  1. REMICADE [Suspect]
     Indication: RHEUMATOID ARTHRITIS
     Dosage: 7TH DOSE
     Route: 042
  2. REMICADE [Suspect]
     Route: 042

REACTIONS (7)
  - BLOOD PRESSURE INCREASED [None]
  - CHILLS [None]
  - HEART RATE INCREASED [None]
  - HYPERSENSITIVITY [None]
  - INFUSION RELATED REACTION [None]
  - PYREXIA [None]
  - VOMITING [None]
